FAERS Safety Report 4276257-7 (Version None)
Quarter: 2004Q1

REPORT INFORMATION
  Report Type: 
  Country: None (occurrence: None)
  Receive Date: 20040121
  Receipt Date: 20030210
  Transmission Date: 20041129
  Serious: No
  Sender: FDA-Public Use
  Company Number: US-GLAXOSMITHKLINE-A0396283A

PATIENT
  Age: 50 Year
  Sex: Male

DRUGS (3)
  1. EPIVIR [Suspect]
     Indication: HIV INFECTION
     Dosage: 100MG TWICE PER DAY
     Route: 048
     Dates: start: 20021001
  2. ZERIT [Suspect]
     Route: 065
  3. KALETRA [Suspect]
     Route: 065

REACTIONS (2)
  - INSOMNIA [None]
  - LIBIDO INCREASED [None]
